FAERS Safety Report 16427752 (Version 4)
Quarter: 2021Q1

REPORT INFORMATION
  Report Type: Report from Study
  Country: JP (occurrence: JP)
  Receive Date: 20190613
  Receipt Date: 20210129
  Transmission Date: 20210419
  Serious: Yes (Death, Hospitalization)
  Sender: FDA-Public Use
  Company Number: JP-ASTRAZENECA-2019SE87252

PATIENT
  Age: 71 Year
  Sex: Male
  Weight: 41 kg

DRUGS (10)
  1. METHYLPREDNISOLONE. [Suspect]
     Active Substance: METHYLPREDNISOLONE
     Indication: RADIATION PNEUMONITIS
     Route: 041
     Dates: start: 20190318, end: 20190320
  2. PREDONINE [Suspect]
     Active Substance: PREDNISOLONE
     Indication: LIVER DISORDER
     Route: 041
     Dates: start: 20190208, end: 20190215
  3. PREDONINE [Suspect]
     Active Substance: PREDNISOLONE
     Indication: LIVER DISORDER
     Route: 041
     Dates: start: 20190321, end: 20190324
  4. PREDONINE [Suspect]
     Active Substance: PREDNISOLONE
     Indication: LIVER DISORDER
     Route: 048
     Dates: start: 20190312, end: 20190314
  5. PREDONINE [Suspect]
     Active Substance: PREDNISOLONE
     Indication: LIVER DISORDER
     Route: 041
     Dates: start: 20190315, end: 20190317
  6. CALONAL [Suspect]
     Active Substance: ACETAMINOPHEN
     Indication: PRODUCT USED FOR UNKNOWN INDICATION
     Route: 065
  7. RADIOTHERAPY [Suspect]
     Active Substance: RADIATION THERAPY
     Indication: NON-SMALL CELL LUNG CANCER
     Route: 065
  8. METHYLPREDNISOLONE. [Suspect]
     Active Substance: METHYLPREDNISOLONE
     Indication: RADIATION PNEUMONITIS
     Route: 041
     Dates: start: 20190325, end: 20190327
  9. IMFINZI [Suspect]
     Active Substance: DURVALUMAB
     Indication: NON-SMALL CELL LUNG CANCER
     Route: 042
     Dates: start: 20190123, end: 20190123
  10. PREDONINE [Suspect]
     Active Substance: PREDNISOLONE
     Indication: LIVER DISORDER
     Route: 048
     Dates: start: 20190216, end: 201902

REACTIONS (4)
  - Radiation pneumonitis [Not Recovered/Not Resolved]
  - Pneumothorax [Not Recovered/Not Resolved]
  - Pneumonia aspiration [Fatal]
  - Liver disorder [Recovering/Resolving]

NARRATIVE: CASE EVENT DATE: 20190201
